FAERS Safety Report 17448879 (Version 6)
Quarter: 2022Q2

REPORT INFORMATION
  Report Type: Other
  Country: CA (occurrence: None)
  Receive Date: 20200224
  Receipt Date: 20220519
  Transmission Date: 20220721
  Serious: Yes (Hospitalization)
  Sender: FDA-Public Use
  Company Number: CA-ROCHE-2257921

PATIENT
  Age: 90 Year
  Sex: Female

DRUGS (25)
  1. RITUXAN [Suspect]
     Active Substance: RITUXIMAB
     Indication: Granulomatosis with polyangiitis
     Dosage: ONE DOSE
     Route: 042
     Dates: start: 20180807, end: 20210329
  2. RITUXAN [Suspect]
     Active Substance: RITUXIMAB
     Indication: Granulomatosis with polyangiitis
     Dosage: INDUCTION RECEIVED OUTSIDE RPAP
     Route: 042
     Dates: start: 2014, end: 2014
  3. RITUXAN [Suspect]
     Active Substance: RITUXIMAB
     Dosage: RELAPSE IN JUL/2014, INDUCTION TO RITUXAN. THEN RECEIVED THREE MAINTENANCE DOSES FOR A TOTAL OF TWO
     Route: 042
     Dates: start: 2014, end: 201601
  4. TYLENOL [Concomitant]
     Active Substance: ACETAMINOPHEN
     Indication: Premedication
     Route: 048
     Dates: start: 20180807
  5. BENADRYL [Concomitant]
     Active Substance: DIPHENHYDRAMINE HYDROCHLORIDE
     Indication: Premedication
     Route: 048
     Dates: start: 20180807, end: 20190813
  6. BENADRYL [Concomitant]
     Active Substance: DIPHENHYDRAMINE HYDROCHLORIDE
     Route: 048
     Dates: start: 20200212
  7. SOLU-MEDROL [Concomitant]
     Active Substance: METHYLPREDNISOLONE SODIUM SUCCINATE
     Indication: Premedication
     Route: 042
     Dates: start: 20180807
  8. PREDNISONE [Concomitant]
     Active Substance: PREDNISONE
     Route: 048
  9. PROTOPIC [Concomitant]
     Active Substance: TACROLIMUS
     Route: 061
  10. RISEDRONATE SODIUM [Concomitant]
     Active Substance: RISEDRONATE SODIUM
     Route: 048
  11. ATIVAN [Concomitant]
     Active Substance: LORAZEPAM
     Route: 048
  12. NORVASC [Concomitant]
     Active Substance: AMLODIPINE BESYLATE
     Route: 048
  13. NORVASC [Concomitant]
     Active Substance: AMLODIPINE BESYLATE
     Dosage: BEDTIME
     Route: 048
  14. PANTOPRAZOLE SODIUM [Concomitant]
     Active Substance: PANTOPRAZOLE SODIUM
     Route: 048
  15. SYNTHROID [Concomitant]
     Active Substance: LEVOTHYROXINE SODIUM
     Route: 048
  16. SULFATRIM [Concomitant]
     Active Substance: SULFAMETHOXAZOLE\TRIMETHOPRIM
     Route: 048
  17. MOMETASONE [Concomitant]
     Active Substance: MOMETASONE
     Dosage: TWO VAPORIZATIONS IN EACH NOSTRIL
     Route: 045
  18. BETADERM [Concomitant]
     Active Substance: BETAMETHASONE VALERATE
     Route: 061
  19. ASPIRIN [Concomitant]
     Active Substance: ASPIRIN
     Route: 048
  20. CARDURA [Concomitant]
     Active Substance: DOXAZOSIN MESYLATE
     Dosage: 1 MG AT BED TIME
     Route: 048
  21. BACTRIM [Concomitant]
     Active Substance: SULFAMETHOXAZOLE\TRIMETHOPRIM
     Dosage: SINGLE DOSE ONE TABLET
  22. CHOLECALCIFEROL [Concomitant]
     Active Substance: CHOLECALCIFEROL
     Dosage: 10 000 UNITS ONCE A WEEK;
  23. ACETAMINOPHEN [Concomitant]
     Active Substance: ACETAMINOPHEN
     Dosage: ONE TO TWO TABLETS
     Route: 048
  24. CALCIUM [Concomitant]
     Active Substance: CALCIUM
     Route: 048
  25. IRON [Concomitant]
     Active Substance: IRON

REACTIONS (20)
  - Respiratory distress [Unknown]
  - Oedema peripheral [Unknown]
  - Arthralgia [Not Recovered/Not Resolved]
  - Infusion related reaction [Unknown]
  - Dyspnoea [Not Recovered/Not Resolved]
  - Blood pressure systolic increased [Unknown]
  - Oxygen saturation decreased [Unknown]
  - Blood pressure diastolic decreased [Unknown]
  - Blood pressure diastolic abnormal [Unknown]
  - Respiratory rate increased [Unknown]
  - Off label use [Unknown]
  - Cardiac failure [Unknown]
  - Cardiac valve disease [Unknown]
  - Hypertension [Unknown]
  - Dyslipidaemia [Unknown]
  - Anaemia [Unknown]
  - Hypothyroidism [Unknown]
  - Cardiomegaly [Unknown]
  - Chest X-ray abnormal [Unknown]
  - Pleural effusion [Unknown]

NARRATIVE: CASE EVENT DATE: 20180807
